FAERS Safety Report 7831809-X (Version None)
Quarter: 2011Q4

REPORT INFORMATION
  Report Type: 
  Country: None (occurrence: None)
  Receive Date: 20111021
  Receipt Date: 20111014
  Transmission Date: 20120403
  Serious: Yes (Other)
  Sender: FDA-Public Use
  Company Number: US-MPIJNJ-2011-04935

PATIENT

DRUGS (6)
  1. ACETAMINOPHEN [Concomitant]
     Indication: PROPHYLAXIS
  2. VELCADE [Suspect]
     Indication: IMMUNE TOLERANCE INDUCTION
     Dosage: 1.3 MG/M2, CYCLIC
  3. PREDNISONE TAB [Concomitant]
     Indication: PROPHYLAXIS
  4. DIPHENHYDRAMINE HCL [Concomitant]
     Indication: PROPHYLAXIS
     Dosage: UNK MG/M2, CYCLIC
  5. TACROLIMUS [Concomitant]
     Indication: PROPHYLAXIS
  6. MYCOPHENOLATE MOFETIL [Concomitant]
     Indication: PROPHYLAXIS

REACTIONS (1)
  - CLOSTRIDIUM DIFFICILE COLITIS [None]
